FAERS Safety Report 24915083 (Version 1)
Quarter: 2025Q1

REPORT INFORMATION
  Report Type: Spontaneous
  Country: GB (occurrence: GB)
  Receive Date: 20250203
  Receipt Date: 20250203
  Transmission Date: 20250409
  Serious: Yes (Other)
  Sender: JUBILANT
  Company Number: None

PATIENT
  Age: 80 Year
  Sex: Female
  Weight: 62 kg

DRUGS (13)
  1. DONEPEZIL HYDROCHLORIDE [Suspect]
     Active Substance: DONEPEZIL HYDROCHLORIDE
     Indication: Product used for unknown indication
     Dosage: 1 DOSAGE FORM, ONCE PER DAY
     Route: 048
     Dates: start: 20241126
  2. PRAMIPEXOLE [Concomitant]
     Active Substance: PRAMIPEXOLE
     Indication: Product used for unknown indication
     Route: 065
     Dates: start: 20250116
  3. SOLARAZE [Concomitant]
     Active Substance: DICLOFENAC SODIUM
     Indication: Product used for unknown indication
     Dosage: UNK UNK, 2 TIMES PER DAY (APPLY TWICE DAILY)
     Route: 065
     Dates: start: 20241212, end: 20250111
  4. BISACODYL [Concomitant]
     Active Substance: BISACODYL
     Indication: Product used for unknown indication
     Dosage: 1 DOSAGE FORM, ONCE PER DAY (AT NIGHT)
     Route: 048
     Dates: start: 20231108
  5. COCODAMOL [Concomitant]
     Active Substance: ACETAMINOPHEN\CODEINE PHOSPHATE
     Indication: Product used for unknown indication
     Dosage: 2 DOSAGE FORM, 4 TIMES PER DAY
     Route: 048
     Dates: start: 20231108
  6. CALCIUM CARBONATE [Concomitant]
     Active Substance: CALCIUM CARBONATE
     Indication: Product used for unknown indication
     Dosage: 1 DOSAGE FORM, 2 TIMES PER DAY
     Route: 048
     Dates: start: 20231108, end: 20241211
  7. LACOSAMIDE [Concomitant]
     Active Substance: LACOSAMIDE
     Indication: Product used for unknown indication
     Route: 048
     Dates: start: 20231108
  8. LACTULOSE [Concomitant]
     Active Substance: LACTULOSE
     Indication: Product used for unknown indication
     Dosage: 15 ML, 2 TIMES PER DAY (TO RELIEVE AND HELP PREVE...)
     Route: 048
     Dates: start: 20231108
  9. PREGABALIN [Concomitant]
     Active Substance: PREGABALIN
     Indication: Product used for unknown indication
     Dosage: 1 DOSAGE FORM, 2 TIMES PER DAY
     Route: 048
     Dates: start: 20231108
  10. QUININE SULFATE [Concomitant]
     Active Substance: QUININE SULFATE
     Indication: Product used for unknown indication
     Dosage: 1 DOSAGE FORM, ONCE PER DAY (AT NIGHT)
     Route: 048
     Dates: start: 20231108, end: 20241211
  11. ROPINIROLE [Concomitant]
     Active Substance: ROPINIROLE
     Indication: Product used for unknown indication
     Route: 048
     Dates: start: 20231108, end: 20241212
  12. CALCIUM\CHOLECALCIFEROL [Concomitant]
     Active Substance: CALCIUM\CHOLECALCIFEROL
     Indication: Product used for unknown indication
     Dosage: 1 DOSAGE FORM, 2 TIMES PER DAY
     Route: 048
     Dates: start: 20250121
  13. FERROUS FUMARATE [Concomitant]
     Active Substance: FERROUS FUMARATE
     Indication: Product used for unknown indication
     Dosage: 1 DOSAGE FORM, 3 TIMES PER DAY
     Route: 048
     Dates: start: 20250121

REACTIONS (6)
  - Restless legs syndrome [Recovered/Resolved]
  - Headache [Recovered/Resolved]
  - Petit mal epilepsy [Recovered/Resolved]
  - Abdominal discomfort [Recovered/Resolved]
  - Vomiting [Recovered/Resolved]
  - Diarrhoea [Recovered/Resolved]

NARRATIVE: CASE EVENT DATE: 20250122
